FAERS Safety Report 7124677-5 (Version None)
Quarter: 2010Q4

REPORT INFORMATION
  Report Type: 
  Country: None (occurrence: None)
  Receive Date: 20101129
  Receipt Date: 20101115
  Transmission Date: 20110411
  Serious: Yes (Death)
  Sender: FDA-Public Use
  Company Number: SE-RANBAXY-2010RR-38023

PATIENT
  Age: 35 Year
  Sex: Male

DRUGS (7)
  1. DEXTROAMPHETAMINE AND AMPHETAMINE SALTS [Suspect]
  2. CODEINE [Suspect]
  3. MORPHINE [Suspect]
  4. SODIUM OXYBATE [Suspect]
  5. HEROIN [Suspect]
  6. COCAINE [Suspect]
  7. ALCOHOL [Suspect]

REACTIONS (3)
  - DEATH [None]
  - DRUG ABUSE [None]
  - OVERDOSE [None]
